FAERS Safety Report 6269926-0 (Version None)
Quarter: 2009Q3

REPORT INFORMATION
  Report Type: 
  Country: None (occurrence: None)
  Receive Date: 20090716
  Receipt Date: 20071015
  Transmission Date: 20100115
  Serious: Yes (Hospitalization, Other)
  Sender: FDA-Public Use
  Company Number: US-ASTRAZENECA-2007UW08831

PATIENT
  Age: 40 Year
  Sex: Female
  Weight: 60.9 kg

DRUGS (77)
  1. SEROQUEL [Suspect]
     Dosage: 25-900 MG
     Route: 048
     Dates: start: 19970101, end: 20060101
  2. ABILIFY [Concomitant]
     Dosage: 15-30 MG
  3. HALDOL [Concomitant]
     Dosage: 2-5 MG
  4. BUTALBITAL [Concomitant]
     Dosage: 50-325 MG
  5. ALPRAZOLAM [Concomitant]
  6. BENZTROPINE MESYLATE [Concomitant]
     Dosage: 1-2 MG
  7. CARISOPRODOL [Concomitant]
  8. PLAVIX [Concomitant]
  9. DIPHENHYDRAMINE HYDROCHLORIDE [Concomitant]
  10. COLACE [Concomitant]
  11. DOXEPIN HYDROCHLORIDE [Concomitant]
  12. RELPAX [Concomitant]
  13. NEURONTIN [Concomitant]
  14. HYDROCODONE BITARTRATE + ACETAMINOPHEN [Concomitant]
     Dosage: 7.5/500
  15. LANTUS [Concomitant]
     Dosage: 25-40 UNITS
  16. HUMALOG [Concomitant]
     Dosage: 5-30 UNITS
  17. COMPAZINE [Concomitant]
  18. PROMETHAZINE HCL [Concomitant]
  19. AMITRIPTYLINE HYDROCHLORIDE [Concomitant]
  20. AMBIEN [Concomitant]
  21. PALGIC [Concomitant]
  22. DOXYCYCLINE [Concomitant]
  23. ALBUTEROL [Concomitant]
  24. CIPROFLOXACIN HYDROCHLORIDE [Concomitant]
  25. ADVAIR DISKUS 100/50 [Concomitant]
     Dosage: 60, 100/50
  26. FOSAMAX [Concomitant]
  27. HYDROCORTISONE [Concomitant]
  28. HYDROMORPHONE HYDROCHLORIDE [Concomitant]
  29. HYOSCYAMINE SULFATE [Concomitant]
  30. KETOROLAC TROMETHAMINE [Concomitant]
  31. MOBIC [Concomitant]
     Dosage: 4-7.5 MG, QAM
  32. NAPROXEN [Concomitant]
  33. NASONEX [Concomitant]
  34. MIRAPEX [Concomitant]
  35. PRILOSEC [Concomitant]
     Route: 048
  36. ULTRACET [Concomitant]
     Dosage: 37.5/325
  37. WARFARIN SODIUM [Concomitant]
  38. CYMBALTA [Concomitant]
     Route: 048
  39. DIAZEPAM [Concomitant]
  40. MIRALAX [Concomitant]
  41. LEXAPRO [Concomitant]
  42. GABITRIL [Concomitant]
     Route: 048
  43. CLONAZEPAM [Concomitant]
  44. SKELAXIN [Concomitant]
  45. AMARYL [Concomitant]
  46. VIOXX [Concomitant]
     Dosage: 25-50 MG
  47. TOBRAMYCIN [Concomitant]
  48. ZYRTEC [Concomitant]
  49. SULFACETAMIDE [Concomitant]
  50. ERYTHROMYCIN [Concomitant]
     Dosage: 5 MG/GM
  51. CYCLOBENZAPRINE [Concomitant]
  52. NASACORT [Concomitant]
  53. ACTOS [Concomitant]
  54. BIAXIN XL [Concomitant]
  55. AUGMENTIN [Concomitant]
  56. GUAIFENESIN [Concomitant]
  57. NEXIUM [Concomitant]
  58. EFFEXOR XR [Concomitant]
  59. TOPAMAX [Concomitant]
  60. PROZAC [Concomitant]
  61. CELEXA [Concomitant]
     Dosage: 20-40 MG
  62. SONATA [Concomitant]
  63. BUSPAR [Concomitant]
  64. ZOLOFT [Concomitant]
  65. FUROSEMIDE [Concomitant]
  66. ENDOCET [Concomitant]
     Dosage: 7.5-325 MG
  67. METHOCARBAMOL [Concomitant]
  68. ETODOLAC [Concomitant]
  69. XOPENEX [Concomitant]
  70. ROZEREM [Concomitant]
  71. IPRATROPIUM BROMIDE [Concomitant]
  72. LEVAQUIN [Concomitant]
     Dosage: 500-750 MG
  73. ZITHROMAX [Concomitant]
  74. CHLORHEXIDINE GLUCONATE [Concomitant]
  75. PATANOL [Concomitant]
  76. SINGULAIR [Concomitant]
  77. POTASSIUM CHLORIDE [Concomitant]

REACTIONS (8)
  - AORTIC ANEURYSM [None]
  - ARRHYTHMIA [None]
  - CARDIAC DISORDER [None]
  - DIABETES MELLITUS [None]
  - DIABETIC KETOACIDOSIS [None]
  - DIABETIC NEUROPATHY [None]
  - MITRAL VALVE INCOMPETENCE [None]
  - NEUROPATHY PERIPHERAL [None]
